FAERS Safety Report 11727900 (Version 3)
Quarter: 2016Q4

REPORT INFORMATION
  Report Type: Spontaneous
  Country: US (occurrence: US)
  Receive Date: 20151112
  Receipt Date: 20161202
  Transmission Date: 20170206
  Serious: Yes (Other)
  Sender: FDA-Public Use
  Company Number: US-ELI_LILLY_AND_COMPANY-US201511001070

PATIENT
  Sex: Female

DRUGS (6)
  1. SEROQUEL [Concomitant]
     Active Substance: QUETIAPINE FUMARATE
     Dosage: 25 MG, QD
     Route: 048
  2. ST. JOHN^S WORT                    /01166801/ [Concomitant]
     Active Substance: ST. JOHN^S WORT
     Dosage: UNK, UNKNOWN
     Route: 065
  3. NEURONTIN [Concomitant]
     Active Substance: GABAPENTIN
     Dosage: 300 MG, TID
     Route: 048
  4. ULTRAM [Concomitant]
     Active Substance: TRAMADOL HYDROCHLORIDE
     Dosage: 50 MG, TID
     Route: 048
  5. CYMBALTA [Suspect]
     Active Substance: DULOXETINE HYDROCHLORIDE
     Indication: PAIN
  6. CYMBALTA [Suspect]
     Active Substance: DULOXETINE HYDROCHLORIDE
     Indication: DEPRESSION
     Dosage: UNK, UNKNOWN
     Route: 065
     Dates: start: 20100918, end: 20131024

REACTIONS (37)
  - Dizziness [Unknown]
  - Gastrooesophageal reflux disease [Unknown]
  - Pain [Unknown]
  - Photophobia [Unknown]
  - Nervousness [Unknown]
  - Panic attack [Unknown]
  - Oropharyngeal pain [Unknown]
  - Vertigo [Unknown]
  - Nightmare [Unknown]
  - Insomnia [Unknown]
  - Drug withdrawal syndrome [Unknown]
  - Abdominal pain [Unknown]
  - Cough [Unknown]
  - Hyperhidrosis [Unknown]
  - Paraesthesia [Unknown]
  - Sinus congestion [Unknown]
  - Back pain [Unknown]
  - Sensory disturbance [Unknown]
  - Confusional state [Unknown]
  - Pain in extremity [Unknown]
  - Tremor [Unknown]
  - Fatigue [Unknown]
  - Vomiting [Unknown]
  - Tinnitus [Unknown]
  - Nausea [Unknown]
  - Hypomania [Unknown]
  - Anxiety [Unknown]
  - Headache [Unknown]
  - Suicidal ideation [Unknown]
  - Sinus pain [Unknown]
  - Dysphoria [Unknown]
  - Agitation [Unknown]
  - Mood swings [Unknown]
  - Panic reaction [Unknown]
  - Tachyphrenia [Unknown]
  - Fibromyalgia [Unknown]
  - Irritability [Unknown]
